FAERS Safety Report 6196104-6 (Version None)
Quarter: 2009Q2

REPORT INFORMATION
  Report Type: 
  Country: None (occurrence: None)
  Receive Date: 20090520
  Receipt Date: 20090509
  Transmission Date: 20091009
  Serious: Yes (Death)
  Sender: FDA-Public Use
  Company Number: CA-BAXTER-2009BH006463

PATIENT
  Sex: Male

DRUGS (2)
  1. BREVIBLOC [Suspect]
     Indication: ATRIAL FIBRILLATION
     Route: 040
  2. AMIODARONE [Concomitant]
     Indication: ATRIAL FIBRILLATION
     Route: 065

REACTIONS (1)
  - CARDIAC ARREST [None]
